FAERS Safety Report 6964860-2 (Version None)
Quarter: 2010Q3

REPORT INFORMATION
  Report Type: 
  Country: None (occurrence: None)
  Receive Date: 20100901
  Receipt Date: 20100818
  Transmission Date: 20110219
  Serious: Yes (Other)
  Sender: FDA-Public Use
  Company Number: 2010P1000930

PATIENT
  Age: 53 Year
  Sex: Female
  Weight: 56.6996 kg

DRUGS (11)
  1. FENTANYL [Suspect]
     Indication: MIGRAINE
     Dosage: 50 MCG/HR; EVERY 2 DAYS; TDER
     Dates: start: 20100101
  2. LAMICTAL [Concomitant]
  3. TOPAMAX [Concomitant]
  4. CYMBALTA [Concomitant]
  5. TIZANIDINE HCL [Concomitant]
  6. SEROQUEL [Concomitant]
  7. ATIVAN [Concomitant]
  8. AMERGE [Concomitant]
  9. IMITREX NASAL SPRAY [Concomitant]
  10. IBUPROFEN [Concomitant]
  11. PHENERGAN [Concomitant]

REACTIONS (6)
  - BODY TEMPERATURE INCREASED [None]
  - CONVULSION [None]
  - FALL [None]
  - MIGRAINE [None]
  - OVERDOSE [None]
  - PSYCHOMOTOR HYPERACTIVITY [None]
